FAERS Safety Report 7380603-5 (Version None)
Quarter: 2011Q1

REPORT INFORMATION
  Report Type: 
  Country: None (occurrence: None)
  Receive Date: 20110321
  Receipt Date: 20110308
  Transmission Date: 20110831
  Serious: Yes (Hospitalization, Other)
  Sender: FDA-Public Use
  Company Number: 029031

PATIENT
  Age: 35 Year
  Sex: Female

DRUGS (1)
  1. PHENTERMINE [Suspect]
     Indication: WEIGHT DECREASED
     Dosage: TREATED INTERMITTENTLY FOR MORE THAN 3 YEARS
     Dates: start: 20050101

REACTIONS (8)
  - HAEMORRHAGE INTRACRANIAL [None]
  - OPTIC DISCS BLURRED [None]
  - CONVULSION [None]
  - VASOGENIC CEREBRAL OEDEMA [None]
  - MENTAL STATUS CHANGES [None]
  - BLOOD PRESSURE INCREASED [None]
  - AGITATION [None]
  - POSTERIOR REVERSIBLE ENCEPHALOPATHY SYNDROME [None]
